FAERS Safety Report 8239791-0 (Version None)
Quarter: 2012Q1

REPORT INFORMATION
  Report Type: 
  Country: None (occurrence: None)
  Receive Date: 20120327
  Receipt Date: 20120327
  Transmission Date: 20120608
  Serious: Yes (Other)
  Sender: FDA-Public Use
  Company Number: None

PATIENT
  Sex: Male
  Weight: 80 kg

DRUGS (2)
  1. IMATINIB 100 MG TAB(S) NOVARTIS PHARMACEUTICALS [Suspect]
     Indication: ACUTE LYMPHOCYTIC LEUKAEMIA
     Dosage: 400 MG DAILY ORAL
     Route: 048
     Dates: start: 20120221, end: 20120319
  2. SIMVASTATIN [Suspect]
     Indication: DYSLIPIDAEMIA
     Dosage: 80 MG Q HS ORAL CHRONICALLY
     Route: 048

REACTIONS (5)
  - MUSCULAR WEAKNESS [None]
  - METASTASIS [None]
  - PAIN IN EXTREMITY [None]
  - INFECTIVE MYOSITIS [None]
  - DRUG INTERACTION [None]
